FAERS Safety Report 20432391 (Version 1)
Quarter: 2022Q1

REPORT INFORMATION
  Report Type: Spontaneous
  Country: CA (occurrence: CA)
  Receive Date: 20220204
  Receipt Date: 20220204
  Transmission Date: 20220424
  Serious: Yes (Death)
  Sender: FDA-Public Use
  Company Number: CA-TEVA-2022-CA-2004015

PATIENT
  Age: 60 Year
  Sex: Female

DRUGS (6)
  1. FENTANYL [Suspect]
     Active Substance: FENTANYL
     Indication: Sedative therapy
     Route: 065
  2. FENTANYL [Suspect]
     Active Substance: FENTANYL
     Indication: Bronchoscopy
  3. FENTANYL [Suspect]
     Active Substance: FENTANYL
     Indication: Analgesic therapy
  4. MIDAZOLAM HYDROCHLORIDE [Suspect]
     Active Substance: MIDAZOLAM HYDROCHLORIDE
     Indication: Sedative therapy
     Route: 065
  5. MIDAZOLAM HYDROCHLORIDE [Suspect]
     Active Substance: MIDAZOLAM HYDROCHLORIDE
     Indication: Bronchoscopy
  6. MIDAZOLAM HYDROCHLORIDE [Suspect]
     Active Substance: MIDAZOLAM HYDROCHLORIDE
     Indication: Analgesic therapy

REACTIONS (20)
  - Acute respiratory failure [Fatal]
  - Altered state of consciousness [Fatal]
  - Asthenia [Fatal]
  - Dyspnoea [Fatal]
  - Hypokinesia [Fatal]
  - Hypoxia [Fatal]
  - Iatrogenic injury [Fatal]
  - Lethargy [Fatal]
  - PCO2 increased [Fatal]
  - Pericardial effusion [Fatal]
  - Pericarditis [Fatal]
  - Physical examination abnormal [Fatal]
  - Pleural effusion [Fatal]
  - Pulmonary pain [Fatal]
  - Pupillary reflex impaired [Fatal]
  - Respiratory acidosis [Fatal]
  - Respiratory distress [Fatal]
  - Somnolence [Fatal]
  - Tachypnoea [Fatal]
  - Therapeutic drug monitoring analysis not performed [Fatal]
